FAERS Safety Report 16707695 (Version 1)
Quarter: 2019Q3

REPORT INFORMATION
  Report Type: Spontaneous
  Country: US (occurrence: US)
  Receive Date: 20190815
  Receipt Date: 20190815
  Transmission Date: 20191004
  Serious: No
  Sender: FDA-Public Use
  Company Number: US-BIODELIVERY SCIENCES INTERNATIONAL-2018BDSI0250

PATIENT
  Age: 69 Year
  Sex: Female
  Weight: 45.4 kg

DRUGS (5)
  1. LEVOTHYROXINE SODIUM. [Concomitant]
     Active Substance: LEVOTHYROXINE SODIUM
     Indication: HYPOTHYROIDISM
     Route: 048
  2. BUPRENORPHINE. [Suspect]
     Active Substance: BUPRENORPHINE
     Indication: HEADACHE
     Route: 002
     Dates: start: 20180514, end: 20180517
  3. CODEINE PHOSPHATE/CAFFEINE/BUTALBITAL/PARACETAMOL [Concomitant]
     Indication: PAIN
     Dosage: UNK; AS NEEDED BASIS EVERY 4-6 HOURS
     Route: 048
  4. SERTRALINE HYDROCHLORIDE. [Concomitant]
     Active Substance: SERTRALINE HYDROCHLORIDE
     Indication: DEPRESSION
     Route: 048
  5. BUPRENORPHINE. [Suspect]
     Active Substance: BUPRENORPHINE
     Route: 002
     Dates: start: 20180518, end: 201806

REACTIONS (4)
  - Product use in unapproved indication [Recovered/Resolved]
  - Nausea [Recovered/Resolved]
  - Nocturnal dyspnoea [Recovered/Resolved]
  - Dizziness [Recovered/Resolved]

NARRATIVE: CASE EVENT DATE: 20180514
